FAERS Safety Report 5445129-4 (Version None)
Quarter: 2007Q3

REPORT INFORMATION
  Report Type: 
  Country: None (occurrence: None)
  Receive Date: 20070906
  Receipt Date: 20070827
  Transmission Date: 20080115
  Serious: Yes (Other)
  Sender: FDA-Public Use
  Company Number: US-PFIZER INC-2007071356

PATIENT
  Sex: Female
  Weight: 65.8 kg

DRUGS (4)
  1. LIPITOR [Suspect]
     Indication: BLOOD CHOLESTEROL INCREASED
     Dates: start: 20040101, end: 20070601
  2. ASPIRIN [Concomitant]
  3. SYNTHROID [Concomitant]
  4. FOSAMAX [Concomitant]

REACTIONS (8)
  - ACTIVITIES OF DAILY LIVING IMPAIRED [None]
  - ASTHENIA [None]
  - BLOOD CHOLESTEROL ABNORMAL [None]
  - DIZZINESS [None]
  - FATIGUE [None]
  - INFLUENZA [None]
  - PAIN IN EXTREMITY [None]
  - UNEVALUABLE EVENT [None]
